FAERS Safety Report 4503340-0 (Version None)
Quarter: 2004Q4

REPORT INFORMATION
  Report Type: 
  Country: None (occurrence: None)
  Receive Date: 20041112
  Receipt Date: 20041013
  Transmission Date: 20050328
  Serious: No
  Sender: FDA-Public Use
  Company Number: R301129-3002-CDN

PATIENT
  Age: 57 Year
  Sex: Female
  Weight: 96.8 kg

DRUGS (2)
  1. E3810 (RABEPRAZOLE) [Suspect]
     Indication: DYSPEPSIA
     Dosage: 20 MG, ORAL
     Route: 048
     Dates: start: 20040722, end: 20040901
  2. E3810 (RABEPRAZOLE) [Suspect]
     Indication: DYSPEPSIA
     Dosage: 20 MG, ORAL
     Route: 048
     Dates: start: 20040902

REACTIONS (1)
  - ATRIAL FIBRILLATION [None]
